FAERS Safety Report 9467129 (Version 2)
Quarter: 2013Q3

REPORT INFORMATION
  Report Type: Spontaneous
  Country: US (occurrence: US)
  Receive Date: 20130820
  Receipt Date: 20130830
  Transmission Date: 20140515
  Serious: Yes (Hospitalization)
  Sender: FDA-Public Use
  Company Number: US-B.I. PHARMACEUTICALS,INC./RIDGEFIELD-2013-BI-25621BP

PATIENT
  Age: 84 Year
  Sex: Male
  Weight: 99.47 kg

DRUGS (10)
  1. PRADAXA [Suspect]
     Indication: ATRIAL FIBRILLATION
     Dosage: 300 MG
     Route: 048
     Dates: start: 201101, end: 20120716
  2. DIOVAN HCT [Concomitant]
     Route: 048
  3. SOTALOL [Concomitant]
     Dosage: 160 MG
     Route: 048
  4. CENTRUM SILVER [Concomitant]
     Route: 048
  5. OSTEO-BIFLEX [Concomitant]
     Route: 048
  6. DILTIAZEM HCL [Concomitant]
     Dosage: 360 MG
     Route: 048
  7. OCUVITE [Concomitant]
     Route: 048
  8. LOVASTATIN [Concomitant]
     Dosage: 20 MG
     Route: 048
  9. PANTOPRAZOLE [Concomitant]
     Dosage: 80 MG
     Route: 048
  10. ASPIRIN [Concomitant]
     Dosage: 81 MG
     Route: 048

REACTIONS (3)
  - Upper gastrointestinal haemorrhage [Not Recovered/Not Resolved]
  - Haemorrhagic anaemia [Not Recovered/Not Resolved]
  - Renal failure acute [Unknown]
